FAERS Safety Report 4779595-4 (Version None)
Quarter: 2005Q3

REPORT INFORMATION
  Report Type: 
  Country: None (occurrence: None)
  Receive Date: 20050927
  Receipt Date: 20050913
  Transmission Date: 20060218
  Serious: Yes (Death)
  Sender: FDA-Public Use
  Company Number: ES-JNJFOC-20050905715

PATIENT
  Age: 75 Year
  Sex: Female

DRUGS (5)
  1. REOPRO [Suspect]
     Indication: ACUTE MYOCARDIAL INFARCTION
     Route: 042
  2. METALYSE [Concomitant]
     Indication: ACUTE MYOCARDIAL INFARCTION
  3. INYESPRIN ORAL [Concomitant]
     Indication: ACUTE MYOCARDIAL INFARCTION
  4. HEPARIN SODIUM [Concomitant]
     Dosage: 5.5 IU
     Route: 042
  5. HEPARIN SODIUM [Concomitant]
     Indication: ACUTE MYOCARDIAL INFARCTION
     Dosage: 5 IU
     Route: 042

REACTIONS (1)
  - CEREBRAL HAEMORRHAGE [None]
